FAERS Safety Report 11061310 (Version 1)
Quarter: 2015Q2

REPORT INFORMATION
  Report Type: Spontaneous
  Country: US (occurrence: None)
  Receive Date: 20150423
  Receipt Date: 20150423
  Transmission Date: 20150821
  Serious: No
  Sender: FDA-Public Use
  Company Number: None

PATIENT
  Age: 68 Year
  Sex: Female
  Weight: 77.11 kg

DRUGS (1)
  1. FARXIGA [Suspect]
     Active Substance: DAPAGLIFLOZIN PROPANEDIOL
     Indication: DIABETES MELLITUS
     Dosage: 1 PILL ONCE DAILY --

REACTIONS (4)
  - Vulvovaginal burning sensation [None]
  - Vulvovaginal swelling [None]
  - Vulvovaginal pruritus [None]
  - Vaginal infection [None]

NARRATIVE: CASE EVENT DATE: 20130315
